FAERS Safety Report 8618700-6 (Version None)
Quarter: 2012Q3

REPORT INFORMATION
  Report Type: 
  Country: None (occurrence: None)
  Receive Date: 20120815
  Receipt Date: 20120815
  Transmission Date: 20120928
  Serious: Yes (Other)
  Sender: FDA-Public Use
  Company Number: None

PATIENT
  Age: 52 Year
  Sex: Female

DRUGS (1)
  1. AVONEX [Suspect]
     Dosage: 7.5MCG Q WEEK, IM
     Route: 030
     Dates: start: 20120717, end: 20120717

REACTIONS (2)
  - SENSORY LOSS [None]
  - MUSCLE SPASMS [None]
